FAERS Safety Report 7723260-8 (Version None)
Quarter: 2011Q3

REPORT INFORMATION
  Report Type: 
  Country: None (occurrence: None)
  Receive Date: 20110901
  Receipt Date: 20110826
  Transmission Date: 20111222
  Serious: Yes (Other)
  Sender: FDA-Public Use
  Company Number: CA-PFIZER INC-2011200423

PATIENT
  Age: 70 Year
  Sex: Female

DRUGS (12)
  1. CELEBREX [Concomitant]
     Dosage: UNK
  2. PREDNISONE [Concomitant]
     Dosage: UNK
  3. ATACAND [Concomitant]
     Dosage: UNK
  4. ADVAIR DISKUS 100/50 [Concomitant]
     Dosage: UNK
  5. WARFARIN [Concomitant]
     Dosage: UNK
  6. RHINOCORT [Concomitant]
     Dosage: UNK
  7. ALDACTONE [Concomitant]
     Dosage: UNK
  8. SILDENAFIL CITRATE [Suspect]
     Indication: PULMONARY HYPERTENSION
     Dosage: 25 MG, 3X/DAY
     Dates: start: 20110101
  9. PREDNISOLONE [Concomitant]
     Dosage: 1 %, UNK (EYE DROPS)
  10. VENTOLIN HFA [Concomitant]
     Dosage: UNK
  11. LASIX [Concomitant]
     Dosage: UNK
  12. VAGIFEM [Concomitant]
     Dosage: UNK

REACTIONS (1)
  - LABYRINTHITIS [None]
